FAERS Safety Report 21713108 (Version 1)
Quarter: 2022Q4

REPORT INFORMATION
  Report Type: Spontaneous
  Country: US (occurrence: US)
  Receive Date: 20221212
  Receipt Date: 20221212
  Transmission Date: 20230113
  Serious: No
  Sender: FDA-Public Use
  Company Number: US-ORG100016242-2022001173

PATIENT
  Sex: Male

DRUGS (3)
  1. EXPAREL [Suspect]
     Active Substance: BUPIVACAINE
     Indication: Nerve block
     Route: 065
     Dates: start: 20220623, end: 20220623
  2. ROPIVACAINE [Suspect]
     Active Substance: ROPIVACAINE
     Indication: Product used for unknown indication
     Dosage: NOT PROVIDED
     Route: 065
     Dates: start: 20220623, end: 20220623
  3. MARCAINE [Concomitant]
     Active Substance: BUPIVACAINE HYDROCHLORIDE
     Indication: Nerve block
     Dosage: NOT PROVIDED
     Dates: start: 20220623, end: 20220623

REACTIONS (3)
  - Product use in unapproved indication [Unknown]
  - No adverse event [Unknown]
  - Labelled drug-drug interaction medication error [Unknown]
